FAERS Safety Report 7893345-4 (Version None)
Quarter: 2011Q4

REPORT INFORMATION
  Report Type: 
  Country: None (occurrence: None)
  Receive Date: 20111104
  Receipt Date: 20111031
  Transmission Date: 20120403
  Serious: Yes (Hospitalization)
  Sender: FDA-Public Use
  Company Number: SK-JNJFOC-20110813060

PATIENT
  Sex: Female
  Weight: 62 kg

DRUGS (8)
  1. NOVALGIN [Concomitant]
  2. FLUVOXAMINE MALEATE [Concomitant]
  3. ZOPICLONE [Concomitant]
  4. ZODAC [Concomitant]
  5. PROTHAZIN [Concomitant]
  6. USTEKINUMAB [Suspect]
     Indication: PSORIASIS
     Route: 058
     Dates: start: 20110401
  7. HALOPERIDOL [Concomitant]
  8. ECOBEC [Concomitant]

REACTIONS (3)
  - HEAT EXHAUSTION [None]
  - DEPRESSED MOOD [None]
  - GRAND MAL CONVULSION [None]
